FAERS Safety Report 6132312-8 (Version None)
Quarter: 2009Q1

REPORT INFORMATION
  Report Type: 
  Country: None (occurrence: None)
  Receive Date: 20090325
  Receipt Date: 20090319
  Transmission Date: 20090719
  Serious: Yes (Other)
  Sender: FDA-Public Use
  Company Number: US-BRISTOL-MYERS SQUIBB COMPANY-13539671

PATIENT
  Age: 57 Year
  Sex: Female

DRUGS (4)
  1. KENALOG-40 [Suspect]
     Indication: ANTIINFLAMMATORY THERAPY
     Dosage: THE INJECTION WAS INTRAVITREAL.
     Route: 031
     Dates: start: 20060706, end: 20060706
  2. KENALOG-40 [Suspect]
     Indication: MACULAR OEDEMA
     Dosage: THE INJECTION WAS INTRAVITREAL.
     Route: 031
     Dates: start: 20060706, end: 20060706
  3. MULTI-VITAMIN [Concomitant]
  4. ESTROGENIC SUBSTANCE [Concomitant]

REACTIONS (2)
  - ENDOPHTHALMITIS [None]
  - VISUAL ACUITY REDUCED [None]
